FAERS Safety Report 24256958 (Version 1)
Quarter: 2024Q3

REPORT INFORMATION
  Report Type: Spontaneous
  Country: KR (occurrence: KR)
  Receive Date: 20240828
  Receipt Date: 20240828
  Transmission Date: 20241017
  Serious: Yes (Other)
  Sender: JOHNSON AND JOHNSON
  Company Number: KR-JNJFOC-20240856287

PATIENT
  Sex: Male
  Weight: 53.1 kg

DRUGS (3)
  1. BEDAQUILINE [Suspect]
     Active Substance: BEDAQUILINE
     Indication: Anaemia
     Route: 048
     Dates: start: 20230801, end: 20230801
  2. LINEZOLID [Suspect]
     Active Substance: LINEZOLID
     Indication: Anaemia
     Route: 048
     Dates: start: 20230711, end: 20230801
  3. LEVOFLOXACIN HEMIHYDRATE [Suspect]
     Active Substance: LEVOFLOXACIN
     Indication: Anaemia
     Route: 048
     Dates: start: 20230530, end: 20230801

REACTIONS (3)
  - Thrombocytopenia [Recovering/Resolving]
  - Anaemia [Recovering/Resolving]
  - Off label use [Unknown]

NARRATIVE: CASE EVENT DATE: 20230822
